FAERS Safety Report 15000043 (Version 2)
Quarter: 2018Q2

REPORT INFORMATION
  Report Type: Spontaneous
  Country: JP (occurrence: JP)
  Receive Date: 20180612
  Receipt Date: 20180620
  Transmission Date: 20180711
  Serious: Yes (Death)
  Sender: FDA-Public Use
  Company Number: JP-TEVA-2018-JP-904153

PATIENT
  Age: 63 Year
  Sex: Male

DRUGS (5)
  1. CISPLATIN. [Suspect]
     Active Substance: CISPLATIN
     Indication: OESOPHAGEAL CARCINOMA
     Dosage: 40 MG/BODY, DAY 1; EIGHT COURSES
     Route: 065
     Dates: start: 201503
  2. TS-1 [Suspect]
     Active Substance: GIMERACIL\OTERACIL\TEGAFUR
     Indication: OESOPHAGEAL CARCINOMA
     Dosage: 100 MG/BODY, DAY 1-14; FOUR COURSES
     Route: 065
  3. CISPLATIN. [Suspect]
     Active Substance: CISPLATIN
     Indication: OESOPHAGEAL CARCINOMA
     Dosage: 40 MG/BODY, DAY 1; FOUR COURSES (PRE-OPERATIVE CHEMOTHERAPY)
     Route: 065
  4. TS-1 [Suspect]
     Active Substance: GIMERACIL\OTERACIL\TEGAFUR
     Indication: OESOPHAGEAL CARCINOMA
     Dosage: 100 MG/BODY, DAYS 1-28; ONE COURSE (PRE-OPERATIVE CHEMOTHERAPY)
     Route: 065
  5. TS-1 [Suspect]
     Active Substance: GIMERACIL\OTERACIL\TEGAFUR
     Indication: OESOPHAGEAL CARCINOMA
     Dosage: 80 MG/BODY, DAY 1-14; EIGHT COURSES (POST-OPERATIVE ADJUVANT CHEMOTHERAPY)
     Route: 065
     Dates: start: 201503

REACTIONS (1)
  - Thrombotic thrombocytopenic purpura [Fatal]
